FAERS Safety Report 7911644-4 (Version None)
Quarter: 2011Q4

REPORT INFORMATION
  Report Type: 
  Country: None (occurrence: None)
  Receive Date: 20111114
  Receipt Date: 20111114
  Transmission Date: 20120403
  Serious: No
  Sender: FDA-Public Use
  Company Number: None

PATIENT
  Sex: Male
  Weight: 115.66 kg

DRUGS (3)
  1. BUPROPION HCL [Suspect]
     Indication: ANXIETY
     Dosage: 1
     Route: 048
     Dates: start: 20111102, end: 20111110
  2. BUPROPION HCL [Suspect]
     Indication: DEPRESSION
     Dosage: 1
     Route: 048
     Dates: start: 20111102, end: 20111110
  3. TEVA 7372 [Concomitant]

REACTIONS (1)
  - EPISTAXIS [None]
